FAERS Safety Report 4862133-5 (Version None)
Quarter: 2005Q4

REPORT INFORMATION
  Report Type: 
  Country: None (occurrence: None)
  Receive Date: 20051221
  Receipt Date: 20051209
  Transmission Date: 20060501
  Serious: Yes (Other)
  Sender: FDA-Public Use
  Company Number: CA-BRISTOL-MYERS SQUIBB COMPANY-13217856

PATIENT
  Age: 74 Year
  Sex: Female

DRUGS (10)
  1. TEQUIN [Suspect]
     Route: 048
  2. ALPRAZOLAM [Concomitant]
  3. AMIODARONE HCL [Concomitant]
  4. AZATHIOPRINE [Concomitant]
  5. ASPIRIN [Concomitant]
  6. HYDROCHLOROTHIAZIDE [Concomitant]
  7. PREDNISONE TAB [Concomitant]
  8. RANITIDINE [Concomitant]
  9. REMERON [Concomitant]
  10. SYNTHROID [Concomitant]

REACTIONS (8)
  - ASTHENIA [None]
  - CONFUSIONAL STATE [None]
  - DIABETIC HYPERGLYCAEMIC COMA [None]
  - DIARRHOEA [None]
  - HYPERGLYCAEMIA [None]
  - HYPEROSMOLAR STATE [None]
  - LACTIC ACIDOSIS [None]
  - PYREXIA [None]
